FAERS Safety Report 8247376 (Version 3)
Quarter: 2013Q3

REPORT INFORMATION
  Report Type: Report from Study
  Country: US (occurrence: US)
  Receive Date: 20111116
  Receipt Date: 20130822
  Transmission Date: 20140515
  Serious: Yes (Hospitalization, Other)
  Sender: FDA-Public Use
  Company Number: US-ACTELION-A-NJ2011-56808

PATIENT
  Age: 48 Year
  Sex: Female

DRUGS (10)
  1. TRACLEER [Suspect]
     Indication: PULMONARY ARTERIAL HYPERTENSION
     Dosage: 125 MG, BID
     Route: 048
     Dates: start: 2009, end: 201307
  2. SILDENAFIL [Concomitant]
  3. METHADONE [Concomitant]
     Dosage: 10 MG, UNK
  4. MORPHINE SULFATE [Concomitant]
     Dosage: 90 MG, UNK
  5. LEVOTHYROXINE [Concomitant]
     Dosage: 0.125 MG, UNK
  6. LEVSIN [Concomitant]
     Dosage: 0.125 MG, UNK
  7. METOPROLOL [Concomitant]
     Dosage: 25 MG, UNK
  8. OMEPRAZOLE [Concomitant]
     Dosage: 20 MG, UNK
  9. CITALOPRAM [Concomitant]
     Dosage: 40 MG, UNK
  10. FUROSEMIDE [Concomitant]
     Dosage: 80 MG, UNK

REACTIONS (8)
  - Obesity [Not Recovered/Not Resolved]
  - Colon cancer [Recovering/Resolving]
  - Colectomy [Recovering/Resolving]
  - Metastases to ovary [Recovering/Resolving]
  - Ovarian rupture [Recovering/Resolving]
  - Oophorectomy [Recovering/Resolving]
  - Gastric bypass [Recovering/Resolving]
  - Abdominal pain upper [Recovering/Resolving]
